FAERS Safety Report 6013568-9 (Version None)
Quarter: 2008Q4

REPORT INFORMATION
  Report Type: 
  Country: None (occurrence: None)
  Receive Date: 20081216
  Receipt Date: 20071107
  Transmission Date: 20090506
  Serious: Yes (Other)
  Sender: FDA-Public Use
  Company Number: US-WYE-H01201907

PATIENT
  Age: 59 Year
  Sex: Female

DRUGS (2)
  1. EFFEXOR XR [Suspect]
     Indication: DEPRESSION
     Dosage: 37.5MG UP TO 150 MG OVER A 6-8 WEEK PERIOD, ORAL
     Route: 048
     Dates: start: 20070901, end: 20071001
  2. ATIVAN [Concomitant]

REACTIONS (1)
  - FLAT AFFECT [None]
